FAERS Safety Report 9148525 (Version 1)
Quarter: 2013Q1

REPORT INFORMATION
  Report Type: Spontaneous
  Country: US (occurrence: None)
  Receive Date: 20130226
  Receipt Date: 20130226
  Transmission Date: 20140127
  Serious: Yes (Death, Other)
  Sender: FDA-Public Use
  Company Number: TPA2013A01610

PATIENT
  Sex: Female

DRUGS (1)
  1. ACTOS (PIOGLITAZONE  HYDROCHLORIDE) [Suspect]
     Indication: TYPE 2 DIABETES MELLITUS
     Dosage: 01/07/2005  -  09/21/2010
     Dates: start: 20050107, end: 20100921

REACTIONS (1)
  - Bladder cancer [None]
